FAERS Safety Report 4317125-1 (Version None)
Quarter: 2004Q1

REPORT INFORMATION
  Report Type: 
  Country: None (occurrence: None)
  Receive Date: 20040312
  Receipt Date: 20040209
  Transmission Date: 20041129
  Serious: No
  Sender: FDA-Public Use
  Company Number: 200410347GDS

PATIENT
  Age: 56 Year
  Sex: Female
  Weight: 65 kg

DRUGS (1)
  1. ACTIRA (MOXIFLOXACIN HYDROCHLORIDE) [Suspect]
     Indication: CONGENITAL BRONCHIECTASIS
     Dosage: 400 MG, TOTAL DAILY, ORAL
     Route: 048

REACTIONS (2)
  - EXTRASYSTOLES [None]
  - TACHYCARDIA [None]
